FAERS Safety Report 24303268 (Version 1)
Quarter: 2024Q3

REPORT INFORMATION
  Report Type: Spontaneous
  Country: TW (occurrence: TW)
  Receive Date: 20240910
  Receipt Date: 20240910
  Transmission Date: 20241017
  Serious: Yes (Other)
  Sender: SEBELA
  Company Number: TW-SEBELA IRELAND LIMITED-2024SEB00066

PATIENT
  Age: 39 Year
  Sex: Female

DRUGS (1)
  1. HYDROCORTISONE [Suspect]
     Active Substance: HYDROCORTISONE\HYDROCORTISONE ACETATE
     Indication: Adrenal insufficiency
     Dosage: 100 MG, 1X/DAY
     Route: 042

REACTIONS (2)
  - Condition aggravated [Recovered/Resolved]
  - Unmasking of previously unidentified disease [Recovered/Resolved]
